FAERS Safety Report 7802153-1 (Version None)
Quarter: 2011Q4

REPORT INFORMATION
  Report Type: 
  Country: None (occurrence: None)
  Receive Date: 20111007
  Receipt Date: 20110927
  Transmission Date: 20120403
  Serious: Yes (Hospitalization)
  Sender: FDA-Public Use
  Company Number: FR-JNJFOC-20111002628

PATIENT
  Age: 64 Year
  Sex: Male

DRUGS (9)
  1. MOXIFLOXACIN HCL [Suspect]
     Indication: PRODUCT USED FOR UNKNOWN INDICATION
     Route: 048
     Dates: start: 20110606, end: 20110616
  2. RIFATER [Concomitant]
     Indication: PULMONARY TUBERCULOSIS
     Route: 065
     Dates: start: 20110521, end: 20110530
  3. TRAMADOL HCL [Concomitant]
     Route: 065
  4. BISOPROLOL FUMARATE [Concomitant]
     Indication: DYSLIPIDAEMIA
     Route: 065
  5. PERINDOPRIL ERBUMINE [Concomitant]
     Indication: DYSLIPIDAEMIA
     Route: 065
  6. ZOLPIDEM [Suspect]
     Indication: PRODUCT USED FOR UNKNOWN INDICATION
     Route: 048
     Dates: end: 20110609
  7. MYAMBUTOL [Concomitant]
     Route: 065
     Dates: start: 20110521, end: 20110530
  8. TRAMADOL HCL [Suspect]
     Indication: PRODUCT USED FOR UNKNOWN INDICATION
     Route: 048
     Dates: end: 20110609
  9. EFFEXOR [Concomitant]
     Indication: DEPRESSION
     Route: 065

REACTIONS (1)
  - CYTOLYTIC HEPATITIS [None]
